FAERS Safety Report 8693824 (Version 2)
Quarter: 2013Q1

REPORT INFORMATION
  Report Type: Spontaneous
  Country: US (occurrence: US)
  Receive Date: 20120731
  Receipt Date: 20130225
  Transmission Date: 20140127
  Serious: Yes (Hospitalization, Other)
  Sender: FDA-Public Use
  Company Number: US-BAYER-2012-074190

PATIENT
  Age: 16 Year
  Sex: Female
  Weight: 54.42 kg

DRUGS (16)
  1. YAZ [Suspect]
     Indication: ACNE
     Dosage: UNK
     Dates: start: 20110305, end: 20110930
  2. YAZ [Suspect]
     Indication: DYSMENORRHOEA
  3. DROSPIRENONE W/ETHINYLESTRADIOL [Suspect]
     Indication: ACNE
     Dosage: UNK
     Dates: start: 20110305, end: 20110930
  4. DROSPIRENONE W/ETHINYLESTRADIOL [Suspect]
     Indication: DYSMENORRHOEA
  5. GIANVI [Suspect]
     Indication: ACNE
     Dosage: UNK
     Dates: start: 20110305, end: 20110930
  6. GIANVI [Suspect]
     Indication: DYSMENORRHOEA
  7. MOTRIN [Concomitant]
     Indication: HEADACHE
     Dosage: 600 MG, UNK
     Dates: start: 20110823, end: 20111031
  8. MOTRIN [Concomitant]
     Indication: JOINT DISLOCATION
  9. NSAID^S [Concomitant]
     Indication: JOINT DISLOCATION
     Dosage: 600 MG, UNK
  10. NSAID^S [Concomitant]
     Indication: HEADACHE
  11. IBUPROFEN [Concomitant]
     Indication: HEADACHE
     Dosage: 600 MG, UNK
     Dates: start: 20110823, end: 20111031
  12. IBUPROFEN [Concomitant]
     Indication: JOINT DISLOCATION
  13. DEXILANT [Concomitant]
     Dosage: 60 MG, UNK
     Dates: start: 20110830, end: 20120111
  14. OMEPRAZOLE [Concomitant]
     Dosage: 20 MG, UNK
     Dates: start: 20111026
  15. LORTAB [Concomitant]
  16. COLACE [Concomitant]

REACTIONS (9)
  - Cerebrovascular accident [None]
  - Pulmonary embolism [None]
  - Myocardial infarction [None]
  - Deep vein thrombosis [None]
  - Gallbladder disorder [None]
  - Biliary dyskinesia [None]
  - Pain [None]
  - Injury [None]
  - Pain [None]
